FAERS Safety Report 5109870-5 (Version None)
Quarter: 2006Q3

REPORT INFORMATION
  Report Type: 
  Country: None (occurrence: None)
  Receive Date: 20060919
  Receipt Date: 20060919
  Transmission Date: 20061208
  Serious: Yes (Hospitalization)
  Sender: FDA-Public Use
  Company Number: None

PATIENT
  Sex: Female
  Weight: 64.8 kg

DRUGS (6)
  1. PEG-L-ASPARAGINASE (K-H) [Suspect]
     Dosage: 4150 MG
  2. VINCRISTINE SULFATE [Suspect]
     Dosage: 8 MG
  3. CYTARABINE [Suspect]
     Dosage: 70 MG
  4. DAUNORUBICIN HCL [Suspect]
     Dosage: 158 MG
  5. DEXAMETHASONE TAB [Suspect]
     Dosage: 112 MG
  6. METHOTREXATE [Suspect]
     Dosage: 15 MG  SEE IMAGE

REACTIONS (6)
  - ABDOMINAL PAIN [None]
  - COLITIS [None]
  - HEPATIC STEATOSIS [None]
  - HEPATOSPLENOMEGALY [None]
  - JAUNDICE [None]
  - LIVER DISORDER [None]
